FAERS Safety Report 6090364-8 (Version None)
Quarter: 2009Q1

REPORT INFORMATION
  Report Type: 
  Country: None (occurrence: None)
  Receive Date: 20090220
  Receipt Date: 20090211
  Transmission Date: 20090719
  Serious: Yes (Disabling)
  Sender: FDA-Public Use
  Company Number: 100#03#2009-00521

PATIENT
  Age: 77 Year
  Sex: Male
  Weight: 80 kg

DRUGS (3)
  1. DOXAZOSIN      (DOXAZOSIN) [Suspect]
     Indication: HYPERTENSION
     Dosage: (ONCE DAILY)
     Route: 048
     Dates: start: 20080624, end: 20081223
  2. ALFUZOSIN (ALFUZOSIN) [Concomitant]
  3. GLICLAZIDE (GLICLAZIDE) [Concomitant]

REACTIONS (3)
  - ASTHENIA [None]
  - FATIGUE [None]
  - LETHARGY [None]
